FAERS Safety Report 22023195 (Version 1)
Quarter: 2023Q1

REPORT INFORMATION
  Report Type: Spontaneous
  Country: CH (occurrence: CH)
  Receive Date: 20230223
  Receipt Date: 20230223
  Transmission Date: 20230418
  Serious: Yes (Hospitalization)
  Sender: FDA-Public Use
  Company Number: CH-ABBVIE-4311440

PATIENT
  Age: 59 Year
  Sex: Female
  Weight: 74 kg

DRUGS (2)
  1. VENETOCLAX [Suspect]
     Active Substance: VENETOCLAX
     Indication: Acute myeloid leukaemia
     Dosage: 1ST AND 2ND CYCLE
     Route: 048
     Dates: start: 20220613, end: 20220808
  2. AZACITIDINE [Suspect]
     Active Substance: AZACITIDINE
     Indication: Acute myeloid leukaemia
     Route: 058
     Dates: start: 20220613, end: 20220808

REACTIONS (2)
  - Pancytopenia [Recovering/Resolving]
  - Neutropenic colitis [Recovering/Resolving]

NARRATIVE: CASE EVENT DATE: 20220628
